FAERS Safety Report 11966319 (Version 1)
Quarter: 2016Q1

REPORT INFORMATION
  Report Type: Spontaneous
  Country: SE (occurrence: SE)
  Receive Date: 20160127
  Receipt Date: 20160127
  Transmission Date: 20160526
  Serious: Yes (Other)
  Sender: FDA-Public Use
  Company Number: SE-PFIZER INC-2016037825

PATIENT
  Age: 45 Year
  Sex: Male

DRUGS (1)
  1. LYRICA [Suspect]
     Active Substance: PREGABALIN

REACTIONS (6)
  - Drug dependence [Recovering/Resolving]
  - Formication [Recovering/Resolving]
  - Condition aggravated [Recovering/Resolving]
  - Mental impairment [Recovering/Resolving]
  - Anxiety [Recovering/Resolving]
  - Hyperaesthesia [Recovering/Resolving]

NARRATIVE: CASE EVENT DATE: 201512
